FAERS Safety Report 8510531-0 (Version None)
Quarter: 2012Q3

REPORT INFORMATION
  Report Type: 
  Country: None (occurrence: None)
  Receive Date: 20120716
  Receipt Date: 20120704
  Transmission Date: 20120928
  Serious: Yes (Death, Other)
  Sender: FDA-Public Use
  Company Number: JP-AMGEN-JPNSP2012041099

PATIENT
  Age: 37 Year
  Sex: Male
  Weight: 133 kg

DRUGS (16)
  1. ENBREL [Suspect]
     Indication: RHEUMATOID ARTHRITIS
     Dosage: 25 MG, WEEKLY
     Route: 058
     Dates: start: 20120612
  2. NORVASC [Concomitant]
     Indication: HYPERTENSION
     Dosage: 2.5 MG, 1X/DAY
     Route: 048
  3. SENNOSIDE                          /00571901/ [Concomitant]
     Indication: CONSTIPATION
     Dosage: 12 MG, 1X/DAY
     Route: 048
  4. VOLTAREN [Concomitant]
     Indication: RHEUMATOID ARTHRITIS
     Dosage: 37.5 MG, 2X/DAY
     Route: 048
  5. REBAMIPIDE [Concomitant]
     Indication: GASTRIC ULCER
     Dosage: 100 MG, 3X/DAY
     Route: 048
  6. MAG-LAX [Concomitant]
     Indication: CONSTIPATION
     Dosage: 200 MG, 1X/DAY
     Route: 048
  7. TIZANIDINE HYDROCHLORIDE [Concomitant]
     Dosage: 1 MG, 3X/DAY
     Route: 048
  8. RABEPRAZOLE SODIUM [Concomitant]
     Indication: GASTRIC ULCER
     Dosage: 10 MG, 2X/DAY
     Route: 048
  9. DIART [Concomitant]
     Indication: HYPERTENSION
     Dosage: 30 MG, 1X/DAY
     Route: 048
  10. ISOPIT [Concomitant]
     Dosage: UNK
     Route: 062
  11. PREDNISOLONE [Concomitant]
     Indication: RHEUMATOID ARTHRITIS
     Dosage: 5 MG, 2X/DAY
     Route: 048
  12. BIOFERMIN                          /00275501/ [Concomitant]
     Dosage: UNK
     Route: 048
  13. DIOVAN [Concomitant]
     Indication: HYPERTENSION
     Dosage: 40 MG, 1X/DAY
     Route: 048
  14. AMLODIPINE [Concomitant]
     Indication: HYPERTENSION
     Dosage: 5 MG, 1X/DAY
     Route: 048
  15. ALFASULY [Concomitant]
     Dosage: 0.5 UG, 1X/DAY
     Route: 048
  16. SALAGEN [Concomitant]
     Indication: APTYALISM
     Dosage: 5 MG, 3X/DAY
     Route: 048

REACTIONS (3)
  - SUDDEN DEATH [None]
  - CARDIAC FAILURE [None]
  - ATRIAL FIBRILLATION [None]
